FAERS Safety Report 4911885-4 (Version None)
Quarter: 2006Q1

REPORT INFORMATION
  Report Type: 
  Country: None (occurrence: None)
  Receive Date: 20060215
  Receipt Date: 20060207
  Transmission Date: 20060701
  Serious: Yes (Other)
  Sender: FDA-Public Use
  Company Number: PHEH2006US01841

PATIENT
  Age: 61 Year
  Sex: Female

DRUGS (8)
  1. METFORMIN [Concomitant]
  2. SIMVASTATIN [Concomitant]
  3. PREVACID [Concomitant]
  4. ASPIRIN [Concomitant]
  5. DIOVAN [Concomitant]
  6. FUROSEMIDE [Concomitant]
  7. MULTIVITAMINS AND IRON [Concomitant]
  8. ZELNORM [Suspect]
     Dosage: 1/2 6 MG TABLET BID
     Route: 048
     Dates: start: 20060124

REACTIONS (4)
  - ANOREXIA [None]
  - FATIGUE [None]
  - HYPOGLYCAEMIA [None]
  - SOMNOLENCE [None]
